FAERS Safety Report 21437641 (Version 3)
Quarter: 2022Q4

REPORT INFORMATION
  Report Type: Spontaneous
  Country: US (occurrence: US)
  Receive Date: 20221011
  Receipt Date: 20221114
  Transmission Date: 20230112
  Serious: No
  Sender: FDA-Public Use
  Company Number: US-AIMMUNE THERAPEUTICS, INC.-2022AIMT02604

PATIENT

DRUGS (6)
  1. PALFORZIA [Suspect]
     Active Substance: PEANUT
     Indication: Food allergy
     Dosage: IDE (0.5-6MG), ONCE
     Route: 048
     Dates: start: 20220331, end: 20220331
  2. PALFORZIA [Suspect]
     Active Substance: PEANUT
     Dosage: 120 MG, 1X/DAY
     Route: 048
     Dates: start: 20220907, end: 20220917
  3. PALFORZIA [Suspect]
     Active Substance: PEANUT
     Dosage: 120 MG, ONCE, LAST DOSE PRIOR ONSET OF COLD
     Route: 048
     Dates: start: 202209, end: 202209
  4. PALFORZIA [Suspect]
     Active Substance: PEANUT
     Dosage: 120 MG, ONCE, DOSE RESTARTED AND ALSO LAST DOSE PRIOR TO EVENTS
     Route: 048
     Dates: start: 20220921, end: 20220921
  5. PALFORZIA [Suspect]
     Active Substance: PEANUT
     Dosage: 60 MG, 1X/DAY, DOSE RESTARTED AT A DECREASED LEVEL
     Route: 048
     Dates: start: 20220928, end: 20220929
  6. PALFORZIA [Suspect]
     Active Substance: PEANUT
     Dosage: 120 MG, 1X/DAY, DOSE INCREASED
     Route: 048
     Dates: start: 20220930

REACTIONS (4)
  - Nasopharyngitis [Recovered/Resolved]
  - Drug monitoring procedure incorrectly performed [Unknown]
  - Abdominal pain upper [Recovered/Resolved]
  - Pruritus [Recovered/Resolved]

NARRATIVE: CASE EVENT DATE: 20220901
